FAERS Safety Report 7563742-5 (Version None)
Quarter: 2011Q2

REPORT INFORMATION
  Report Type: 
  Country: None (occurrence: None)
  Receive Date: 20110622
  Receipt Date: 20110616
  Transmission Date: 20111010
  Serious: Yes (Death, Hospitalization, Other)
  Sender: FDA-Public Use
  Company Number: US-MERCK-0908USA02148

PATIENT
  Age: 55 Year
  Sex: Female

DRUGS (2)
  1. FOSAMAX [Suspect]
     Indication: OSTEOPOROSIS
     Route: 048
     Dates: start: 20030701, end: 20050601
  2. PLAVIX [Concomitant]
     Route: 065
     Dates: start: 20020101, end: 20070101

REACTIONS (42)
  - DYSPNOEA [None]
  - ELECTROCARDIOGRAM ST SEGMENT ELEVATION [None]
  - IMPAIRED HEALING [None]
  - CARDIO-RESPIRATORY ARREST [None]
  - CHRONIC OBSTRUCTIVE PULMONARY DISEASE [None]
  - UPPER RESPIRATORY TRACT INFECTION [None]
  - SUPRAVENTRICULAR TACHYCARDIA [None]
  - MUSCLE HAEMORRHAGE [None]
  - PAIN IN JAW [None]
  - BONE LOSS [None]
  - OSTEONECROSIS OF JAW [None]
  - OSTEOMYELITIS [None]
  - LEFT VENTRICULAR HYPERTROPHY [None]
  - HEADACHE [None]
  - BONE FRAGMENTATION [None]
  - SPINAL OSTEOARTHRITIS [None]
  - ADJUSTMENT DISORDER [None]
  - CHEST PAIN [None]
  - TACHYCARDIA [None]
  - DRUG INEFFECTIVE [None]
  - ARTERIOSCLEROSIS CORONARY ARTERY [None]
  - MYOCARDIAL INFARCTION [None]
  - RESPIRATORY FAILURE [None]
  - HYPERTENSION [None]
  - CORONARY ARTERY DISEASE [None]
  - SUTURE RELATED COMPLICATION [None]
  - PARAESTHESIA [None]
  - TRISMUS [None]
  - OSTEOSCLEROSIS [None]
  - OSTEORADIONECROSIS [None]
  - HYPERLIPIDAEMIA [None]
  - ORAL INFECTION [None]
  - GINGIVITIS [None]
  - SWELLING [None]
  - CATARACT [None]
  - CARDIAC FAILURE CONGESTIVE [None]
  - PNEUMONIA ASPIRATION [None]
  - PERICARDIAL EFFUSION [None]
  - VENTRICULAR TACHYCARDIA [None]
  - BACK PAIN [None]
  - HYPOAESTHESIA ORAL [None]
  - DENTAL CARIES [None]
